FAERS Safety Report 5662138-0 (Version None)
Quarter: 2008Q1

REPORT INFORMATION
  Report Type: 
  Country: None (occurrence: None)
  Receive Date: 20080312
  Receipt Date: 20080219
  Transmission Date: 20080703
  Serious: No
  Sender: FDA-Public Use
  Company Number: US-BOEHRINGER INGELHEIM GMBH, GERMANY-2008-BP-02559BP

PATIENT
  Sex: Female

DRUGS (3)
  1. MIRAPEX [Suspect]
     Indication: RESTLESS LEGS SYNDROME
     Dosage: EVERY PM DAILY
     Route: 048
     Dates: start: 20030101
  2. LUNESTA [Concomitant]
     Indication: SLEEP DISORDER
  3. NOVORAL [Concomitant]
     Dates: start: 20070101

REACTIONS (3)
  - DIZZINESS [None]
  - HEADACHE [None]
  - INSOMNIA [None]
